FAERS Safety Report 20064990 (Version 1)
Quarter: 2021Q4

REPORT INFORMATION
  Report Type: Spontaneous
  Country: US (occurrence: US)
  Receive Date: 20211113
  Receipt Date: 20211113
  Transmission Date: 20220303
  Serious: No
  Sender: FDA-Public Use
  Company Number: US-NOVARTISTESTPH-NVSC2021US259685

PATIENT
  Sex: Female

DRUGS (2)
  1. PATADAY [Suspect]
     Active Substance: OLOPATADINE HYDROCHLORIDE
     Indication: Product used for unknown indication
     Dosage: UNK
     Route: 065
     Dates: start: 20210915, end: 20210917
  2. PATADAY [Suspect]
     Active Substance: OLOPATADINE HYDROCHLORIDE
     Dosage: UNK
     Route: 065
     Dates: start: 20211028, end: 20211030

REACTIONS (3)
  - Chalazion [Recovered/Resolved]
  - Hordeolum [Recovered/Resolved]
  - Chalazion [Not Recovered/Not Resolved]

NARRATIVE: CASE EVENT DATE: 20210915
